FAERS Safety Report 21032352 (Version 1)
Quarter: 2022Q3

REPORT INFORMATION
  Report Type: Spontaneous
  Country: None (occurrence: US)
  Receive Date: 20220701
  Receipt Date: 20220701
  Transmission Date: 20221027
  Serious: No
  Sender: FDA-Public Use
  Company Number: US-ITALFARMACO SPA-2130475

PATIENT
  Age: 55 Year
  Sex: Male

DRUGS (4)
  1. TIGLUTIK [Suspect]
     Active Substance: RILUZOLE
     Indication: Amyotrophic lateral sclerosis
     Route: 048
     Dates: start: 20210721
  2. PULMOCARE [Concomitant]
  3. ASCORBIC ACID [Concomitant]
     Active Substance: ASCORBIC ACID
  4. VITAMIN E [Concomitant]
     Active Substance: .ALPHA.-TOCOPHEROL

REACTIONS (1)
  - Pruritus [Not Recovered/Not Resolved]
